FAERS Safety Report 6265195-6 (Version None)
Quarter: 2009Q3

REPORT INFORMATION
  Report Type: 
  Country: None (occurrence: None)
  Receive Date: 20090708
  Receipt Date: 20090703
  Transmission Date: 20100115
  Serious: Yes (Hospitalization)
  Sender: FDA-Public Use
  Company Number: GXKR2009DE07622

PATIENT
  Age: 68 Year
  Sex: Male
  Weight: 88 kg

DRUGS (4)
  1. FLECAINIDE (NGX) (FLECAINIDE) UNKNOWN [Suspect]
     Dosage: 100 MG, BID
  2. ACETYLSALICYLIC ACID SRT [Concomitant]
  3. BLOPRESS PLUS (CANDESARTAN CILEXETIL,  HYDROCHLOROTHIAZIDE) [Concomitant]
  4. BISOPROLOL FUMARATE [Concomitant]

REACTIONS (7)
  - ARRHYTHMIA [None]
  - ATRIAL FIBRILLATION [None]
  - ATRIAL FLUTTER [None]
  - BLOOD PRESSURE INCREASED [None]
  - DISEASE RECURRENCE [None]
  - HEART RATE DECREASED [None]
  - MIGRAINE [None]
